FAERS Safety Report 4318048-4 (Version None)
Quarter: 2004Q1

REPORT INFORMATION
  Report Type: 
  Country: None (occurrence: None)
  Receive Date: 20040317
  Receipt Date: 20040205
  Transmission Date: 20041129
  Serious: Yes (Hospitalization)
  Sender: FDA-Public Use
  Company Number: PHHO2004CA02020

PATIENT
  Age: 51 Year
  Sex: Female

DRUGS (4)
  1. ZELNORM [Suspect]
     Indication: IRRITABLE BOWEL SYNDROME
     Dosage: UNK, UNK
     Route: 048
     Dates: start: 20031220, end: 20040102
  2. MICARDIS [Concomitant]
     Dosage: 80 MG, UNK
  3. FLEXERIL [Concomitant]
     Dosage: 10 MG, UNK
  4. ATASOL [Concomitant]
     Dosage: 500 MG, UNK

REACTIONS (1)
  - ABDOMINAL ADHESIONS [None]
